FAERS Safety Report 14384074 (Version 2)
Quarter: 2018Q1

REPORT INFORMATION
  Report Type: Spontaneous
  Country: US (occurrence: US)
  Receive Date: 20180115
  Receipt Date: 20180223
  Transmission Date: 20180509
  Serious: No
  Sender: FDA-Public Use
  Company Number: US-PFIZER INC-2018013766

PATIENT
  Age: 58 Year
  Sex: Male
  Weight: 118 kg

DRUGS (1)
  1. SUTENT [Suspect]
     Active Substance: SUNITINIB MALATE
     Dosage: UNK, CYCLIC (TAKES SUTENT FOR 4 WEEKS AND THEN IS OFF FOR 2 WEEKS)

REACTIONS (5)
  - Weight increased [Unknown]
  - Neoplasm progression [Unknown]
  - Arthralgia [Not Recovered/Not Resolved]
  - Blood potassium abnormal [Unknown]
  - Blood creatinine abnormal [Unknown]

NARRATIVE: CASE EVENT DATE: 2017
